FAERS Safety Report 8771872 (Version 2)
Quarter: 2012Q4

REPORT INFORMATION
  Report Type: Report from Study
  Country: CA (occurrence: CA)
  Receive Date: 20120906
  Receipt Date: 20121123
  Transmission Date: 20130627
  Serious: Yes (Hospitalization)
  Sender: FDA-Public Use
  Company Number: CA-JNJFOC-20120901178

PATIENT
  Sex: Female
  Weight: 47.63 kg

DRUGS (1)
  1. STELARA [Suspect]
     Indication: PSORIASIS
     Route: 058
     Dates: start: 20110926

REACTIONS (3)
  - Convulsion [Unknown]
  - Blood sodium decreased [Unknown]
  - Fall [Unknown]
